FAERS Safety Report 8006570-9 (Version None)
Quarter: 2011Q4

REPORT INFORMATION
  Report Type: 
  Country: None (occurrence: None)
  Receive Date: 20111227
  Receipt Date: 20111217
  Transmission Date: 20120403
  Serious: Yes (Other)
  Sender: FDA-Public Use
  Company Number: US-PAR PHARMACEUTICAL, INC-2011SCPR003562

PATIENT

DRUGS (3)
  1. DEXAMETHASONE [Suspect]
     Dosage: UNK, UNKNOWN 3 CYCLES
     Route: 065
  2. PAMIDRONATE DISODIUM [Suspect]
     Indication: MULTIPLE MYELOMA
     Dosage: 90 MG, MONTHLY
     Route: 042
  3. DEXAMETHASONE [Suspect]
     Indication: MULTIPLE MYELOMA
     Dosage: UNK, UNKNOWN
     Route: 048
     Dates: start: 19970101, end: 20060101

REACTIONS (1)
  - STRESS FRACTURE [None]
